FAERS Safety Report 18873651 (Version 1)
Quarter: 2021Q1

REPORT INFORMATION
  Report Type: Other
  Country: US (occurrence: US)
  Receive Date: 20210210
  Receipt Date: 20210210
  Transmission Date: 20210420
  Serious: Yes (Other)
  Sender: FDA-Public Use
  Company Number: US-ROCHE-2764833

PATIENT

DRUGS (5)
  1. AZITHROMYCIN ANHYDROUS. [Suspect]
     Active Substance: AZITHROMYCIN ANHYDROUS
     Indication: COVID-19
     Route: 065
  2. EPOPROSTENOL. [Suspect]
     Active Substance: EPOPROSTENOL
     Indication: COVID-19
     Route: 042
  3. TOCILIZUMAB. [Suspect]
     Active Substance: TOCILIZUMAB
     Indication: COVID-19
     Route: 065
  4. LOPINAVIR;RITONAVIR [Suspect]
     Active Substance: LOPINAVIR\RITONAVIR
     Indication: COVID-19
     Route: 065
  5. HYDROXYCHLOROQUINE [Suspect]
     Active Substance: HYDROXYCHLOROQUINE
     Indication: COVID-19
     Route: 065

REACTIONS (13)
  - Embolism venous [Unknown]
  - Organ failure [Unknown]
  - Pulmonary embolism [Unknown]
  - Embolic stroke [Unknown]
  - Venous thrombosis [Unknown]
  - Transaminases increased [Unknown]
  - Intentional product use issue [Unknown]
  - Acute myocardial infarction [Unknown]
  - Myocarditis [Unknown]
  - Renal failure [Unknown]
  - Thrombosis in device [Unknown]
  - Off label use [Unknown]
  - Deep vein thrombosis [Unknown]
